FAERS Safety Report 23771757 (Version 1)
Quarter: 2024Q2

REPORT INFORMATION
  Report Type: Spontaneous
  Country: US (occurrence: None)
  Receive Date: 20240423
  Receipt Date: 20240423
  Transmission Date: 20240716
  Serious: Yes (Hospitalization, Other)
  Sender: FDA-Public Use
  Company Number: US-MLMSERVICE-20240403-PI012982-00263-1

PATIENT
  Age: 71 Year
  Sex: Female

DRUGS (1)
  1. PIPERACILLIN AND TAZOBACTAM [Suspect]
     Active Substance: PIPERACILLIN SODIUM\TAZOBACTAM SODIUM
     Indication: Infection

REACTIONS (3)
  - Angioedema [Recovered/Resolved]
  - Cross sensitivity reaction [Recovered/Resolved]
  - Pruritus [Recovered/Resolved]
